FAERS Safety Report 7385336-7 (Version None)
Quarter: 2011Q1

REPORT INFORMATION
  Report Type: 
  Country: None (occurrence: None)
  Receive Date: 20110330
  Receipt Date: 20100823
  Transmission Date: 20110831
  Serious: No
  Sender: FDA-Public Use
  Company Number: US-MYLANLABS-2010S1015625

PATIENT
  Age: 62 Year
  Sex: Female

DRUGS (2)
  1. KLONOPIN [Concomitant]
  2. EMSAM [Suspect]
     Indication: DEPRESSION
     Route: 062
     Dates: start: 20100820

REACTIONS (3)
  - AGITATION [None]
  - INSOMNIA [None]
  - DYSURIA [None]
